FAERS Safety Report 5513000-5 (Version None)
Quarter: 2007Q4

REPORT INFORMATION
  Report Type: 
  Country: None (occurrence: None)
  Receive Date: 20071112
  Receipt Date: 20071031
  Transmission Date: 20080405
  Serious: Yes (Life-Threatening, Hospitalization)
  Sender: FDA-Public Use
  Company Number: PL-BRISTOL-MYERS SQUIBB COMPANY-13977012

PATIENT
  Age: 48 Year
  Sex: Male

DRUGS (1)
  1. IFOSFAMIDE [Suspect]
     Indication: NON-HODGKIN'S LYMPHOMA
     Route: 042
     Dates: start: 20070829, end: 20070831

REACTIONS (2)
  - ABNORMAL BEHAVIOUR [None]
  - DISORIENTATION [None]
